FAERS Safety Report 24938465 (Version 4)
Quarter: 2025Q2

REPORT INFORMATION
  Report Type: Spontaneous
  Country: ES (occurrence: ES)
  Receive Date: 20250206
  Receipt Date: 20250609
  Transmission Date: 20250717
  Serious: Yes (Congenital Anomaly, Other)
  Sender: NOVARTIS
  Company Number: ES-002147023-NVSC2025ES019028

PATIENT
  Sex: Female

DRUGS (1)
  1. KESIMPTA [Suspect]
     Active Substance: OFATUMUMAB
     Indication: Foetal exposure during pregnancy
     Route: 064

REACTIONS (3)
  - Congenital ectopic bladder [Recovering/Resolving]
  - Abnormal organ maturation [Recovering/Resolving]
  - Foetal exposure during pregnancy [Unknown]
